FAERS Safety Report 10388939 (Version 1)
Quarter: 2014Q1

REPORT INFORMATION
  Report Type: Spontaneous
  Country: US (occurrence: None)
  Receive Date: 20140306
  Receipt Date: 20140306
  Transmission Date: 20141002
  Serious: Yes (Other)
  Sender: FDA-Public Use
  Company Number: 163-21880-13021507

PATIENT
  Age: 79 Year
  Sex: Female

DRUGS (7)
  1. REVLIMID (LENALIDOMIDE) (10 MILLIGRAM, CAPSULES) [Suspect]
     Indication: PLASMA CELL MYELOMA
     Dosage: 10 MG, 21 IN 28 D, PO
     Route: 048
     Dates: start: 20130115
  2. FUROSEMIDE (FUROSEMIDE) [Concomitant]
  3. ALLOPURINOL (ALLOPURINOL) [Concomitant]
  4. ATENOLOL (ATENOLOL) [Concomitant]
  5. OMEPRAZOLE (OMEPRAZOLE) [Concomitant]
  6. SIMVASTATIN (SIMVASTATIN) [Concomitant]
  7. LEVOTHYROXINE (LEVOTHYROXINE) [Concomitant]

REACTIONS (2)
  - Deep vein thrombosis [None]
  - Neutropenia [None]
